FAERS Safety Report 9717438 (Version 1)
Quarter: 2013Q4

REPORT INFORMATION
  Report Type: Spontaneous
  Country: US (occurrence: US)
  Receive Date: 20131127
  Receipt Date: 20131127
  Transmission Date: 20140711
  Serious: No
  Sender: FDA-Public Use
  Company Number: US-GILEAD-2009-0019685

PATIENT
  Sex: Male

DRUGS (9)
  1. LETAIRIS [Suspect]
     Indication: PULMONARY ARTERIAL HYPERTENSION
     Route: 048
     Dates: start: 20080512
  2. LISINOPRIL [Concomitant]
  3. ASPIRIN [Concomitant]
  4. PLAVIX [Concomitant]
  5. SINGULAIR [Concomitant]
  6. TERBUTALINE [Concomitant]
  7. LORAZEPAM [Concomitant]
  8. ISOSORBIDE [Concomitant]
  9. FORTICAL [Concomitant]

REACTIONS (2)
  - Palpitations [Unknown]
  - Oedema peripheral [Unknown]
